APPROVED DRUG PRODUCT: BALCOLTRA
Active Ingredient: ETHINYL ESTRADIOL; LEVONORGESTREL
Strength: 0.02MG;0.1MG
Dosage Form/Route: TABLET;ORAL
Application: N208612 | Product #001 | TE Code: AB3
Applicant: AVION PHARMACEUTICALS LLC
Approved: Jan 9, 2018 | RLD: Yes | RS: Yes | Type: RX

PATENTS:
Patent 7838042 | Expires: Jun 1, 2027